FAERS Safety Report 9992396 (Version 7)
Quarter: 2015Q2

REPORT INFORMATION
  Report Type: Spontaneous
  Country: US (occurrence: US)
  Receive Date: 20140310
  Receipt Date: 20150608
  Transmission Date: 20150821
  Serious: Yes (Hospitalization, Other)
  Sender: FDA-Public Use
  Company Number: US-GLAXOSMITHKLINE-A1064099A

PATIENT
  Age: 75 Year
  Sex: Female

DRUGS (6)
  1. FLOLAN [Suspect]
     Active Substance: EPOPROSTENOL SODIUM
     Indication: COR PULMONALE CHRONIC
     Dosage: 9.5 NG/KG/MINUTE
     Route: 042
     Dates: start: 20131031
  2. FLOLAN [Suspect]
     Active Substance: EPOPROSTENOL SODIUM
     Indication: POLYARTHRITIS
     Dosage: 10.5 NG/KG/MIN CO
     Route: 042
     Dates: start: 20131031
  3. FLOLAN [Suspect]
     Active Substance: EPOPROSTENOL SODIUM
     Indication: PULMONARY HYPERTENSION
     Dosage: 15.5 NG/KG/MIN
     Dates: start: 20131101
  4. FLOLAN [Suspect]
     Active Substance: EPOPROSTENOL SODIUM
     Dosage: 16.5 NG/KG/MIN CO, VIAL STRENGTH: 1.5 MG
     Route: 042
     Dates: start: 20131031
  5. REVATIO [Concomitant]
     Active Substance: SILDENAFIL CITRATE
  6. FLOLAN [Suspect]
     Active Substance: EPOPROSTENOL SODIUM
     Dosage: 16.5 NG/KG/MIN
     Route: 042

REACTIONS (6)
  - Haematoma [Unknown]
  - Medical device complication [Recovered/Resolved]
  - Catheter site haemorrhage [Unknown]
  - Central venous catheterisation [Recovered/Resolved]
  - Fall [Unknown]
  - Dyspnoea exertional [Recovered/Resolved]

NARRATIVE: CASE EVENT DATE: 201408
